FAERS Safety Report 5064948-X (Version None)
Quarter: 2006Q3

REPORT INFORMATION
  Report Type: 
  Country: None (occurrence: None)
  Receive Date: 20060726
  Receipt Date: 20060707
  Transmission Date: 20061208
  Serious: Yes (Other)
  Sender: FDA-Public Use
  Company Number: US200605006284

PATIENT
  Age: 58 Year
  Sex: Female
  Weight: 82.5 kg

DRUGS (6)
  1. CYMBALTA [Suspect]
     Dosage: SEE IMAGE
     Dates: start: 20050301, end: 20051201
  2. CYMBALTA [Suspect]
     Dosage: SEE IMAGE
     Dates: start: 20051201, end: 20060327
  3. PROVERA [Concomitant]
  4. PREMARIN [Concomitant]
  5. LEVOXYL [Concomitant]
  6. ZOLOFT [Concomitant]

REACTIONS (3)
  - CHOLECYSTECTOMY [None]
  - HEPATIC STEATOSIS [None]
  - SPLENOMEGALY [None]
